FAERS Safety Report 15815580 (Version 1)
Quarter: 2019Q1

REPORT INFORMATION
  Report Type: Spontaneous
  Country: IT (occurrence: IT)
  Receive Date: 20190112
  Receipt Date: 20190112
  Transmission Date: 20190417
  Serious: Yes (Hospitalization, Other)
  Sender: FDA-Public Use
  Company Number: PHHY2019IT000856

PATIENT
  Age: 16 Year
  Sex: Male

DRUGS (4)
  1. DEFERASIROX. [Suspect]
     Active Substance: DEFERASIROX
     Indication: CHELATION THERAPY
     Dosage: 1500 MG, QD
     Route: 065
     Dates: start: 201506
  2. TACROLIMUS. [Concomitant]
     Active Substance: TACROLIMUS
     Indication: PROPHYLAXIS AGAINST GRAFT VERSUS HOST DISEASE
     Dosage: UNK
     Route: 065
     Dates: end: 201506
  3. MYCOPHENOLATE MOFETIL. [Concomitant]
     Active Substance: MYCOPHENOLATE MOFETIL
     Indication: PROPHYLAXIS AGAINST GRAFT VERSUS HOST DISEASE
     Dosage: UNK
     Route: 065
     Dates: end: 201505
  4. URSODEOXYCHOLIC ACID [Concomitant]
     Active Substance: URSODIOL
     Indication: PRODUCT USED FOR UNKNOWN INDICATION
     Route: 065

REACTIONS (13)
  - Drug-induced liver injury [Recovering/Resolving]
  - Vomiting [Unknown]
  - Albuminuria [Unknown]
  - Liver function test abnormal [Recovered/Resolved]
  - Fanconi syndrome [Unknown]
  - Metabolic acidosis [Recovered/Resolved]
  - Abdominal pain [Unknown]
  - Proteinuria [Unknown]
  - Weight decreased [Recovering/Resolving]
  - Asthenia [Unknown]
  - Tachypnoea [Unknown]
  - Decreased appetite [Unknown]
  - Pallor [Unknown]

NARRATIVE: CASE EVENT DATE: 201507
